FAERS Safety Report 6490171-8 (Version None)
Quarter: 2009Q4

REPORT INFORMATION
  Report Type: 
  Country: None (occurrence: None)
  Receive Date: 20091211
  Receipt Date: 20090923
  Transmission Date: 20100525
  Serious: No
  Sender: FDA-Public Use
  Company Number: A0808700A

PATIENT
  Age: 80 Year
  Sex: Female

DRUGS (1)
  1. FLONASE [Suspect]
     Indication: SINUS DISORDER
     Dosage: 2SPR TWICE PER DAY
     Route: 045
     Dates: start: 20090501, end: 20090824

REACTIONS (1)
  - DRUG INEFFECTIVE [None]
